FAERS Safety Report 5257166-3 (Version None)
Quarter: 2007Q1

REPORT INFORMATION
  Report Type: 
  Country: None (occurrence: None)
  Receive Date: 20070307
  Receipt Date: 20070215
  Transmission Date: 20070707
  Serious: No
  Sender: FDA-Public Use
  Company Number: PHBS2007BR03015

PATIENT
  Age: 24 Year
  Sex: Female
  Weight: 54.5 kg

DRUGS (1)
  1. ZELMAC [Suspect]
     Indication: IRRITABLE BOWEL SYNDROME
     Dosage: 6 MG, BID
     Route: 048
     Dates: start: 20070111, end: 20070212

REACTIONS (2)
  - ABDOMINAL PAIN [None]
  - DIARRHOEA [None]
